FAERS Safety Report 24432562 (Version 2)
Quarter: 2024Q4

REPORT INFORMATION
  Report Type: Spontaneous
  Country: ES (occurrence: ES)
  Receive Date: 20241014
  Receipt Date: 20241022
  Transmission Date: 20250115
  Serious: Yes (Other)
  Sender: ROCHE
  Company Number: None

PATIENT
  Age: 12 Year
  Sex: Female

DRUGS (6)
  1. XOLAIR [Suspect]
     Active Substance: OMALIZUMAB
     Indication: Urticaria chronic
     Dosage: UNK (JER PREC C/28 DAYS)
     Route: 050
     Dates: start: 20230209, end: 20240809
  2. XOLAIR [Suspect]
     Active Substance: OMALIZUMAB
     Dosage: 150 MG, Q4W
     Route: 050
     Dates: start: 202309, end: 20240507
  3. XOLAIR [Suspect]
     Active Substance: OMALIZUMAB
     Dosage: UNK (JER PREC C/28 DAYS)
     Route: 050
     Dates: start: 20211027, end: 202204
  4. XOLAIR [Suspect]
     Active Substance: OMALIZUMAB
     Dosage: UNK (JER PREC C/28 DAYS)
     Route: 050
     Dates: start: 202204, end: 202209
  5. XOLAIR [Suspect]
     Active Substance: OMALIZUMAB
     Dosage: UNK (JER PREC C/28 DAYS)
     Route: 050
     Dates: start: 202209, end: 202301
  6. XOLAIR [Suspect]
     Active Substance: OMALIZUMAB
     Dosage: UNK (JER PREC C/28 DAYS)
     Route: 050
     Dates: start: 202301, end: 202309

REACTIONS (4)
  - Deafness [Recovered/Resolved]
  - Deafness unilateral [Recovered/Resolved]
  - Deafness bilateral [Recovered/Resolved]
  - Neurosensory hypoacusis [Recovered/Resolved]

NARRATIVE: CASE EVENT DATE: 20230601
